FAERS Safety Report 7163906-9 (Version None)
Quarter: 2010Q4

REPORT INFORMATION
  Report Type: 
  Country: None (occurrence: None)
  Receive Date: 20101215
  Receipt Date: 20101201
  Transmission Date: 20110411
  Serious: Yes (Other)
  Sender: FDA-Public Use
  Company Number: BR-AMGEN-BRASP2010004047

PATIENT

DRUGS (13)
  1. ENBREL [Suspect]
     Indication: PSORIATIC ARTHROPATHY
     Dosage: 25 MG, UNK
     Route: 058
     Dates: start: 20100819, end: 20101105
  2. ENBREL [Suspect]
     Dosage: 25 MG, 2X/WEEK
     Route: 058
     Dates: start: 20100901
  3. AMITRIL [Concomitant]
     Dosage: UNK
  4. RIVOTRIL [Concomitant]
     Dosage: UNK
  5. RIVOTRIL [Concomitant]
     Dosage: AT NIGHT
  6. IBUPROFEN [Concomitant]
     Dosage: UNK
  7. IBUPROFEN [Concomitant]
     Dosage: UNK
  8. HYDROCHLOROTHIAZIDE [Concomitant]
     Dosage: UNK
  9. HYDROCHLOROTHIAZIDE [Concomitant]
     Dosage: UNK
  10. METHOTREXATE [Concomitant]
     Dosage: UNK
  11. METHOTREXATE [Concomitant]
     Dosage: 3 TABLETS PER WEEK
  12. AMITRIPTYLINE [Concomitant]
     Dosage: 25 MG, 2X/DAY
  13. FOLIC ACID [Concomitant]
     Dosage: ONCE DAILY

REACTIONS (1)
  - INTERVERTEBRAL DISC PROTRUSION [None]
